FAERS Safety Report 11574147 (Version 4)
Quarter: 2016Q1

REPORT INFORMATION
  Report Type: Spontaneous
  Country: US (occurrence: US)
  Receive Date: 20150930
  Receipt Date: 20160307
  Transmission Date: 20160525
  Serious: Yes (Other)
  Sender: FDA-Public Use
  Company Number: US-009507513-1509USA013968

PATIENT
  Sex: Female

DRUGS (1)
  1. NEXPLANON [Suspect]
     Active Substance: ETONOGESTREL
     Dosage: UNK
     Route: 059
     Dates: start: 20150202

REACTIONS (3)
  - Ectopic pregnancy with contraceptive device [Unknown]
  - Surgery [Unknown]
  - Unintended pregnancy [Unknown]

NARRATIVE: CASE EVENT DATE: 2015
